FAERS Safety Report 6842474-2 (Version None)
Quarter: 2010Q3

REPORT INFORMATION
  Report Type: 
  Country: None (occurrence: None)
  Receive Date: 20100714
  Receipt Date: 20080428
  Transmission Date: 20110219
  Serious: No
  Sender: FDA-Public Use
  Company Number: US-PFIZER INC-2007063087

PATIENT
  Sex: Female
  Weight: 58.1 kg

DRUGS (2)
  1. CHANTIX [Suspect]
     Indication: SMOKING CESSATION THERAPY
     Dates: start: 20070101, end: 20070101
  2. DRUG, UNSPECIFIED [Concomitant]
     Indication: THYROID DISORDER

REACTIONS (3)
  - NAUSEA [None]
  - VOMITING [None]
  - WEIGHT INCREASED [None]
